FAERS Safety Report 5007091-8 (Version None)
Quarter: 2006Q2

REPORT INFORMATION
  Report Type: 
  Country: None (occurrence: None)
  Receive Date: 20060517
  Receipt Date: 20060504
  Transmission Date: 20061013
  Serious: Yes (Other)
  Sender: FDA-Public Use
  Company Number: 2006060185

PATIENT
  Age: 69 Year
  Sex: Male
  Weight: 108.8633 kg

DRUGS (1)
  1. DETROL LA [Suspect]
     Indication: ILL-DEFINED DISORDER
     Dates: start: 20000101

REACTIONS (15)
  - BLADDER CANCER [None]
  - CONSTIPATION [None]
  - DIABETES MELLITUS [None]
  - DRY MOUTH [None]
  - DYSGEUSIA [None]
  - HAEMORRHAGE [None]
  - HEADACHE [None]
  - HYPERTENSION [None]
  - INSOMNIA [None]
  - KNEE ARTHROPLASTY [None]
  - NO THERAPEUTIC RESPONSE [None]
  - NOCTURIA [None]
  - PROSTATE CANCER [None]
  - SURGERY [None]
  - URINARY INCONTINENCE [None]
